FAERS Safety Report 13258763 (Version 2)
Quarter: 2017Q1

REPORT INFORMATION
  Report Type: Report from Study
  Country: None (occurrence: US)
  Receive Date: 20170222
  Receipt Date: 20170301
  Transmission Date: 20170428
  Serious: Yes (Hospitalization, Other)
  Sender: FDA-Public Use
  Company Number: US-ABBVIE-17K-163-1877107-00

PATIENT
  Age: 30 Year
  Sex: Female
  Weight: 106.69 kg

DRUGS (4)
  1. HUMIRA [Suspect]
     Active Substance: ADALIMUMAB
     Indication: CROHN^S DISEASE
     Route: 058
     Dates: start: 20170201
  2. HUMIRA [Suspect]
     Active Substance: ADALIMUMAB
     Indication: COLITIS ULCERATIVE
     Route: 058
     Dates: start: 201501, end: 20170215
  3. EUCERIN [Concomitant]
     Active Substance: ENSULIZOLE\EUCERIN\OCTINOXATE\OCTISALATE\TITANIUM DIOXIDE\ZINC OXIDE
     Indication: PRODUCT USED FOR UNKNOWN INDICATION
  4. HUMIRA [Suspect]
     Active Substance: ADALIMUMAB
     Dosage: DOSE INCREASED
     Route: 058

REACTIONS (20)
  - Nausea [Unknown]
  - Diarrhoea [Recovered/Resolved]
  - Fatigue [Unknown]
  - Insomnia [Unknown]
  - Headache [Unknown]
  - Colitis [Unknown]
  - Fear [Unknown]
  - Pyrexia [Unknown]
  - Activities of daily living impaired [Unknown]
  - Anxiety [Unknown]
  - Post procedural infection [Unknown]
  - Dehydration [Recovered/Resolved]
  - Nausea [Recovered/Resolved]
  - Crohn^s disease [Recovered/Resolved]
  - Rectal haemorrhage [Unknown]
  - Cervix carcinoma [Unknown]
  - Decreased appetite [Unknown]
  - Depressed mood [Unknown]
  - Diarrhoea [Unknown]
  - Vomiting [Unknown]

NARRATIVE: CASE EVENT DATE: 20170208
